FAERS Safety Report 4982057-2 (Version None)
Quarter: 2006Q2

REPORT INFORMATION
  Report Type: 
  Country: None (occurrence: None)
  Receive Date: 20060425
  Receipt Date: 20060414
  Transmission Date: 20061013
  Serious: Yes (Hospitalization)
  Sender: FDA-Public Use
  Company Number: US-MERCK-0604USA02705

PATIENT
  Age: 52 Year
  Sex: Female
  Weight: 139 kg

DRUGS (15)
  1. RISPERDAL [Concomitant]
     Route: 065
  2. BENZTROPINE MESYLATE [Concomitant]
     Route: 065
  3. COZAAR [Concomitant]
     Route: 065
  4. [THERAPY UNSPECIFIED] [Concomitant]
     Route: 065
  5. GLUCOPHAGE [Concomitant]
     Route: 065
  6. CELEXA [Concomitant]
     Route: 065
  7. PRILOSEC [Concomitant]
     Route: 065
  8. LOTENSIN [Concomitant]
     Route: 065
  9. VITAMINS (UNSPECIFIED) [Concomitant]
     Route: 065
  10. COMBIVENT [Concomitant]
     Route: 065
  11. AVANDIA [Concomitant]
     Route: 065
  12. AMARYL [Concomitant]
     Route: 065
  13. GENEBS EXTRA STRENGTH [Concomitant]
     Route: 065
  14. VIOXX [Suspect]
     Indication: ARTHRITIS
     Route: 048
     Dates: start: 20001001, end: 20041001
  15. TYLENOL (CAPLET) [Concomitant]
     Route: 065

REACTIONS (2)
  - ANXIETY [None]
  - MYOCARDIAL INFARCTION [None]
